FAERS Safety Report 8914980 (Version 1)
Quarter: 2012Q4

REPORT INFORMATION
  Report Type: 
  Country: US (occurrence: US)
  Receive Date: 20121116
  Receipt Date: 20121116
  Transmission Date: 20130627
  Serious: Yes (Other)
  Sender: FDA-Public Use
  Company Number: -DX529-2012DX000249

PATIENT
  Age: 66 None
  Sex: Female
  Weight: 83.01 kg

DRUGS (8)
  1. KALBITOR [Suspect]
     Indication: HEREDITARY ANGIOEDEMA
     Route: 058
     Dates: start: 201210, end: 201210
  2. KALBITOR [Suspect]
     Indication: HEREDITARY ANGIOEDEMA
     Route: 058
     Dates: start: 20121105, end: 20121105
  3. KALBITOR [Suspect]
     Indication: HEREDITARY ANGIOEDEMA
     Route: 058
     Dates: start: 20111222
  4. DANAZOL [Suspect]
     Indication: HEREDITARY ANGIOEDEMA
     Dates: start: 201208
  5. DANAZOL [Suspect]
     Indication: HEREDITARY ANGIOEDEMA
     Dates: start: 20120915, end: 20121101
  6. DANAZOL [Suspect]
     Indication: HEREDITARY ANGIOEDEMA
     Dates: start: 20121102
  7. DANAZOL [Suspect]
     Indication: HEREDITARY ANGIOEDEMA
     Dates: start: 20121102
  8. MEDROXYPROGESTERONE [Concomitant]
     Indication: HEREDITARY ANGIOEDEMA
     Dates: start: 20121001

REACTIONS (10)
  - Macular degeneration [Not Recovered/Not Resolved]
  - Weight increased [Not Recovered/Not Resolved]
  - Malaise [Not Recovered/Not Resolved]
  - Pain [Not Recovered/Not Resolved]
  - Vision blurred [Not Recovered/Not Resolved]
  - Eye pain [Not Recovered/Not Resolved]
  - Blood pressure increased [Unknown]
  - Gastrooesophageal reflux disease [Unknown]
  - Hereditary angioedema [Not Recovered/Not Resolved]
  - Nausea [Not Recovered/Not Resolved]
